FAERS Safety Report 7770143-3 (Version None)
Quarter: 2011Q3

REPORT INFORMATION
  Report Type: 
  Country: None (occurrence: None)
  Receive Date: 20110922
  Receipt Date: 20110223
  Transmission Date: 20111222
  Serious: No
  Sender: FDA-Public Use
  Company Number: US-ASTRAZENECA-2011SE10316

PATIENT
  Age: 52 Year
  Sex: Male
  Weight: 113.4 kg

DRUGS (10)
  1. METOPROLOL TARTRATE [Concomitant]
  2. LISINOPRIL [Concomitant]
  3. PROSTERIDE [Concomitant]
  4. SEROQUEL [Suspect]
     Route: 048
     Dates: start: 20110202, end: 20110222
  5. GABAPENTIN [Concomitant]
  6. XANAX [Concomitant]
  7. SEROQUEL [Suspect]
     Indication: BIPOLAR DISORDER
     Route: 048
     Dates: start: 20030101, end: 20110201
  8. TRAMADOL HCL [Concomitant]
  9. SIMVASTATIN [Concomitant]
  10. SEROQUEL [Suspect]
     Route: 048
     Dates: start: 20110223

REACTIONS (5)
  - DIARRHOEA [None]
  - SLEEP DISORDER [None]
  - MOOD ALTERED [None]
  - NIGHTMARE [None]
  - HEADACHE [None]
